FAERS Safety Report 4968811-1 (Version None)
Quarter: 2006Q2

REPORT INFORMATION
  Report Type: 
  Country: None (occurrence: None)
  Receive Date: 20060411
  Receipt Date: 20060329
  Transmission Date: 20061013
  Serious: Yes (Hospitalization)
  Sender: FDA-Public Use
  Company Number: JP-JPN-A200601079

PATIENT
  Age: 61 Year
  Sex: Male

DRUGS (2)
  1. MODACIN [Suspect]
     Indication: PNEUMONIA
     Dosage: .5G TWICE PER DAY
     Route: 042
     Dates: start: 20060319, end: 20060324
  2. VOLTAREN [Concomitant]
     Route: 054

REACTIONS (1)
  - LIVER DISORDER [None]
